FAERS Safety Report 4796510-8 (Version None)
Quarter: 2005Q4

REPORT INFORMATION
  Report Type: 
  Country: None (occurrence: None)
  Receive Date: 20051011
  Receipt Date: 20050215
  Transmission Date: 20060501
  Serious: Yes (Hospitalization)
  Sender: FDA-Public Use
  Company Number: 2005-BP-02397BP

PATIENT
  Age: 68 Year
  Sex: Female

DRUGS (1)
  1. CATAPRES [Suspect]
     Indication: HYPERTENSION
     Dosage: 0.2 MG (5 MG, ONE PATCH Q WEEK), TO
     Route: 061
     Dates: start: 20010101, end: 20030701

REACTIONS (1)
  - BLOOD PRESSURE INCREASED [None]
